FAERS Safety Report 13260523 (Version 1)
Quarter: 2017Q1

REPORT INFORMATION
  Report Type: Spontaneous
  Country: DK (occurrence: DK)
  Receive Date: 20170222
  Receipt Date: 20170222
  Transmission Date: 20170428
  Serious: Yes (Other)
  Sender: FDA-Public Use
  Company Number: DK-SA-2014SA175962

PATIENT
  Age: 31 Year
  Sex: Female

DRUGS (2)
  1. LEMTRADA [Suspect]
     Active Substance: ALEMTUZUMAB
     Indication: MULTIPLE SCLEROSIS
     Route: 042
     Dates: start: 20141215
  2. LEMTRADA [Suspect]
     Active Substance: ALEMTUZUMAB
     Indication: MULTIPLE SCLEROSIS
     Route: 042
     Dates: start: 20151124

REACTIONS (11)
  - Thyroiditis subacute [Unknown]
  - Headache [Unknown]
  - Depression [Unknown]
  - Goitre [Unknown]
  - Weight increased [Unknown]
  - Fatigue [Unknown]
  - Blood thyroid stimulating hormone decreased [Unknown]
  - Myxoedema [Unknown]
  - Dizziness [Unknown]
  - Hyperthyroidism [Unknown]
  - Rash [Unknown]

NARRATIVE: CASE EVENT DATE: 20141218
